FAERS Safety Report 15685074 (Version 1)
Quarter: 2018Q4

REPORT INFORMATION
  Report Type: Spontaneous
  Country: US (occurrence: US)
  Receive Date: 20181121
  Receipt Date: 20181121
  Transmission Date: 20190205
  Serious: Yes (Hospitalization, Other)
  Sender: FDA-Public Use
  Company Number: None

PATIENT
  Age: 69 Year
  Weight: 68.04 kg

DRUGS (3)
  1. LATUDA [Suspect]
     Active Substance: LURASIDONE HYDROCHLORIDE
  2. LITHIUM. [Suspect]
     Active Substance: LITHIUM
  3. LATUDA [Suspect]
     Active Substance: LURASIDONE HYDROCHLORIDE
     Indication: PSYCHOMOTOR HYPERACTIVITY

REACTIONS (4)
  - Drooling [None]
  - Tremor [None]
  - Drug dependence [None]
  - Rhinorrhoea [None]

NARRATIVE: CASE EVENT DATE: 20181015
